FAERS Safety Report 19272264 (Version 1)
Quarter: 2021Q2

REPORT INFORMATION
  Report Type: Spontaneous
  Country: DE (occurrence: DE)
  Receive Date: 20210519
  Receipt Date: 20210519
  Transmission Date: 20210717
  Serious: Yes (Hospitalization)
  Sender: FDA-Public Use
  Company Number: DE-NOVOPROD-799644

PATIENT
  Age: 19 Year
  Sex: Female

DRUGS (2)
  1. NOVORAPID [Suspect]
     Active Substance: INSULIN ASPART
     Indication: TYPE 1 DIABETES MELLITUS
     Dosage: 50 IU
     Route: 058
     Dates: start: 2018
  2. NOVORAPID [Suspect]
     Active Substance: INSULIN ASPART
     Dosage: 30.30 IU
     Route: 058
     Dates: end: 20210403

REACTIONS (5)
  - Pyrexia [Recovered/Resolved]
  - Pain in extremity [Recovered/Resolved]
  - Hyperglycaemia [Recovered/Resolved]
  - Product leakage [Unknown]
  - Dehydration [Recovered/Resolved]

NARRATIVE: CASE EVENT DATE: 20210305
